FAERS Safety Report 10395469 (Version 1)
Quarter: 2014Q1

REPORT INFORMATION
  Report Type: Spontaneous
  Country: US (occurrence: None)
  Receive Date: 20130313
  Receipt Date: 20130313
  Transmission Date: 20141002
  Serious: Yes (Other)
  Sender: FDA-Public Use
  Company Number: 1000038088

PATIENT
  Age: 56 Year
  Sex: Male
  Weight: 59 kg

DRUGS (8)
  1. SAVELLA (MILNACIPRAN HYDROCHLORIDE) (12.5 MILLIGRAM, TABLETS) [Suspect]
     Indication: FIBROMYALGIA
     Route: 048
     Dates: start: 20120615, end: 20120615
  2. SAVELLA (MILNACIPRAN HYDROCHLORIDE) (50 MILLIGRAM, TABLETS) [Suspect]
     Indication: FIBROMYALGIA
     Dosage: 100 MG (50 MG,2 IN 1 D)
     Route: 048
     Dates: start: 20120622, end: 20120702
  3. SAVELLA (MILNACIPRAN HYDROCHLORIDE) (TABLETS) [Suspect]
     Indication: FIBROMYALGIA
     Dosage: 50 MG (25 MG, 2 IN 1 D)
     Route: 048
     Dates: start: 20120720
  4. FLEXERIL (CYCLOBENZAPRINE) [Concomitant]
  5. ULTRAM (TRAMADOL HYDROCHLORIDE) [Concomitant]
  6. ALBUTEROL HFA (SALBUTAMOL) [Concomitant]
  7. VICODIN [Concomitant]
  8. TRAMADOL [Concomitant]

REACTIONS (2)
  - Urinary retention [None]
  - Drug ineffective [None]
